FAERS Safety Report 17016823 (Version 1)
Quarter: 2019Q4

REPORT INFORMATION
  Report Type: Spontaneous
  Country: US (occurrence: US)
  Receive Date: 20191110
  Receipt Date: 20191110
  Transmission Date: 20200122
  Serious: No
  Sender: FDA-Public Use
  Company Number: None

PATIENT
  Age: 52 Year
  Sex: Female
  Weight: 100.35 kg

DRUGS (3)
  1. ESTRADIOL. [Suspect]
     Active Substance: ESTRADIOL
     Indication: MENOPAUSE
     Dosage: ?          QUANTITY:4 PATCH(ES);OTHER FREQUENCY:ONCE WEEKLY;?
     Route: 062
  2. ESTRADIOL. [Suspect]
     Active Substance: ESTRADIOL
     Indication: MENOPAUSE
     Dosage: ?          QUANTITY:8 PATCH(ES);OTHER FREQUENCY:ONCE WEEKLY;?
     Route: 062
     Dates: start: 20191017, end: 20191027
  3. ATENOLOL 50 MG/DAILY [Concomitant]

REACTIONS (2)
  - Arthralgia [None]
  - Therapy change [None]

NARRATIVE: CASE EVENT DATE: 20191027
